FAERS Safety Report 13551153 (Version 2)
Quarter: 2018Q4

REPORT INFORMATION
  Report Type: Spontaneous
  Country: FR (occurrence: FR)
  Receive Date: 20170516
  Receipt Date: 20181017
  Transmission Date: 20190204
  Serious: Yes (Hospitalization)
  Sender: FDA-Public Use
  Company Number: FR-PFIZER INC-2017209501

PATIENT
  Age: 10 Year
  Sex: Female

DRUGS (1)
  1. GENOTONORM [Suspect]
     Active Substance: SOMATROPIN
     Indication: GROWTH HORMONE DEFICIENCY
     Dosage: 1.2 MG, 1X/DAY
     Route: 058
     Dates: start: 200912, end: 20160425

REACTIONS (1)
  - Glioneuronal tumour [Not Recovered/Not Resolved]

NARRATIVE: CASE EVENT DATE: 20160424
